FAERS Safety Report 9596501 (Version 1)
Quarter: 2013Q4

REPORT INFORMATION
  Report Type: Spontaneous
  Country: JP (occurrence: JP)
  Receive Date: 20131004
  Receipt Date: 20131004
  Transmission Date: 20140711
  Serious: Yes (Other)
  Sender: FDA-Public Use
  Company Number: JP-BAUSCH-BL-2013-005231

PATIENT
  Sex: Female

DRUGS (6)
  1. BRONUCK OPHTHALMIC SOLUTION 0.1% [Suspect]
     Indication: POSTOPERATIVE CARE
     Route: 047
  2. BRONUCK OPHTHALMIC SOLUTION 0.1% [Suspect]
     Indication: CATARACT OPERATION
  3. GATIFLO [Suspect]
     Indication: POSTOPERATIVE CARE
  4. GATIFLO [Suspect]
     Indication: CATARACT OPERATION
  5. RINDERON [Suspect]
     Indication: POSTOPERATIVE CARE
  6. RINDERON [Suspect]
     Indication: CATARACT OPERATION

REACTIONS (1)
  - Dermatitis bullous [Not Recovered/Not Resolved]
